FAERS Safety Report 6592832-9 (Version None)
Quarter: 2010Q1

REPORT INFORMATION
  Report Type: 
  Country: None (occurrence: None)
  Receive Date: 20100222
  Receipt Date: 20100208
  Transmission Date: 20100710
  Serious: Yes (Hospitalization)
  Sender: FDA-Public Use
  Company Number: US-BAYER-201013501NA

PATIENT
  Age: 55 Year
  Sex: Male

DRUGS (1)
  1. BETASERON [Suspect]
     Indication: MULTIPLE SCLEROSIS
     Route: 065
     Dates: end: 20100125

REACTIONS (5)
  - H1N1 INFLUENZA [None]
  - INFLUENZA [None]
  - KIDNEY INFECTION [None]
  - PNEUMONIA [None]
  - TRANSIENT ISCHAEMIC ATTACK [None]
